FAERS Safety Report 4280923-7 (Version None)
Quarter: 2004Q1

REPORT INFORMATION
  Report Type: 
  Country: None (occurrence: None)
  Receive Date: 20040129
  Receipt Date: 20040120
  Transmission Date: 20041129
  Serious: Yes (Hospitalization, Other)
  Sender: FDA-Public Use
  Company Number: GB-GLAXOSMITHKLINE-B0320608A

PATIENT
  Age: 82 Year
  Sex: Male
  Weight: 94 kg

DRUGS (9)
  1. AVANDIA [Suspect]
     Indication: DIABETES MELLITUS
     Dosage: 4MG PER DAY
     Route: 048
     Dates: start: 20020722, end: 20020920
  2. SODIUM BICARBONATE IN PLASTIC CONTAINER [Concomitant]
     Route: 065
     Dates: start: 20020918
  3. VISCOTEARS [Concomitant]
     Route: 065
     Dates: start: 20010116
  4. OMEPRAZOLE [Concomitant]
     Route: 065
     Dates: start: 20010116
  5. METFORMIN HCL [Concomitant]
     Route: 065
     Dates: start: 20010116
  6. TELMISARTAN [Concomitant]
     Route: 065
     Dates: start: 20011205
  7. MOXONIDINE [Concomitant]
     Route: 065
     Dates: start: 20020218
  8. SENNA [Concomitant]
     Route: 065
     Dates: start: 20020422
  9. SERETIDE [Concomitant]
     Dates: start: 20020917

REACTIONS (1)
  - ATRIAL FLUTTER [None]
